FAERS Safety Report 22117495 (Version 2)
Quarter: 2023Q2

REPORT INFORMATION
  Report Type: Spontaneous
  Country: US (occurrence: US)
  Receive Date: 20230321
  Receipt Date: 20230405
  Transmission Date: 20230722
  Serious: Yes (Hospitalization, Other)
  Sender: FDA-Public Use
  Company Number: US-CIPLA LTD.-2023US01498

PATIENT

DRUGS (2)
  1. WARFARIN [Suspect]
     Active Substance: WARFARIN
     Indication: Antiphospholipid syndrome
     Dosage: UNK
     Route: 065
  2. WARFARIN [Suspect]
     Active Substance: WARFARIN
     Dosage: UNK, DISCHARGED WITH WARFARIN
     Route: 065

REACTIONS (4)
  - Prosthetic cardiac valve thrombosis [Recovered/Resolved]
  - Aortic stenosis [Recovered/Resolved]
  - Treatment noncompliance [Unknown]
  - Anticoagulation drug level above therapeutic [Unknown]
